FAERS Safety Report 10194088 (Version 1)
Quarter: 2014Q2

REPORT INFORMATION
  Report Type: Spontaneous
  Country: US (occurrence: US)
  Receive Date: 20140524
  Receipt Date: 20140524
  Transmission Date: 20141212
  Serious: No
  Sender: FDA-Public Use
  Company Number: US-SANOFI-AVENTIS-2013SA056273

PATIENT
  Age: 47 Year
  Sex: Male

DRUGS (1)
  1. LANTUS [Suspect]
     Indication: TYPE 1 DIABETES MELLITUS
     Dosage: 12 UNITS OR A LITTLE MORE SOMETIMES
     Route: 051

REACTIONS (3)
  - Weight increased [Not Recovered/Not Resolved]
  - Euphoric mood [Not Recovered/Not Resolved]
  - Asthenia [Not Recovered/Not Resolved]
